FAERS Safety Report 7360167-2 (Version None)
Quarter: 2011Q1

REPORT INFORMATION
  Report Type: 
  Country: None (occurrence: None)
  Receive Date: 20110318
  Receipt Date: 20110310
  Transmission Date: 20110831
  Serious: No
  Sender: FDA-Public Use
  Company Number: US-PFIZER INC-2011053424

PATIENT
  Sex: Female
  Weight: 58.957 kg

DRUGS (1)
  1. ZOLOFT [Suspect]
     Indication: ANXIETY
     Dosage: 100 MG, DAILY

REACTIONS (6)
  - DIZZINESS [None]
  - ABNORMAL DREAMS [None]
  - ASTHENIA [None]
  - FEELING ABNORMAL [None]
  - VERTIGO [None]
  - NAUSEA [None]
